FAERS Safety Report 13585109 (Version 1)
Quarter: 2017Q2

REPORT INFORMATION
  Report Type: Spontaneous
  Country: US (occurrence: US)
  Receive Date: 20170526
  Receipt Date: 20170526
  Transmission Date: 20170830
  Serious: Yes (Death, Hospitalization)
  Sender: FDA-Public Use
  Company Number: US-B.I. PHARMACEUTICALS,INC./RIDGEFIELD-2017-BI-029210

PATIENT
  Sex: Male
  Weight: 90.71 kg

DRUGS (1)
  1. PRADAXA [Suspect]
     Active Substance: DABIGATRAN ETEXILATE MESYLATE
     Indication: ATRIAL FIBRILLATION
     Route: 048
     Dates: start: 20120124, end: 20150124

REACTIONS (6)
  - Anaemia [Unknown]
  - Pericardial effusion [Fatal]
  - Gastrointestinal haemorrhage [Fatal]
  - Coagulopathy [Unknown]
  - Atrial fibrillation [Fatal]
  - Acute kidney injury [Fatal]
